FAERS Safety Report 13995960 (Version 1)
Quarter: 2017Q3

REPORT INFORMATION
  Report Type: Spontaneous
  Country: US (occurrence: US)
  Receive Date: 20170921
  Receipt Date: 20170921
  Transmission Date: 20171128
  Serious: No
  Sender: FDA-Public Use
  Company Number: US-AMARIN PHARMA, INC.-2017AMR000157

PATIENT
  Sex: Male
  Weight: 70.37 kg

DRUGS (4)
  1. OLMESARTAN [Concomitant]
     Active Substance: OLMESARTAN
     Indication: BLOOD PRESSURE MEASUREMENT
     Route: 048
  2. OLMESARTAN [Concomitant]
     Active Substance: OLMESARTAN
     Indication: DIURETIC THERAPY
  3. VASCEPA [Suspect]
     Active Substance: ICOSAPENT ETHYL
     Indication: BLOOD TRIGLYCERIDES
     Route: 048
  4. CENTRUM VITAMINS [Concomitant]
     Indication: PRODUCT USED FOR UNKNOWN INDICATION

REACTIONS (6)
  - Dysgeusia [Recovered/Resolved]
  - Product odour abnormal [Unknown]
  - Product colour issue [Unknown]
  - Abdominal discomfort [Recovered/Resolved]
  - Flatulence [Recovered/Resolved]
  - Off label use [Unknown]

NARRATIVE: CASE EVENT DATE: 2017
